FAERS Safety Report 8856982 (Version 2)
Quarter: 2012Q4

REPORT INFORMATION
  Report Type: 
  Country: US (occurrence: US)
  Receive Date: 20121023
  Receipt Date: 20121204
  Transmission Date: 20130627
  Serious: No
  Sender: FDA-Public Use
  Company Number: US-AMGEN-USASP2012055699

PATIENT
  Age: 57 Year
  Sex: Female
  Weight: 73.92 kg

DRUGS (2)
  1. ENBREL [Suspect]
     Indication: RHEUMATOID ARTHRITIS
     Dosage: 50 ml, 2 times/wk
     Route: 058
     Dates: start: 20111129
  2. HUMIRA [Concomitant]
     Dosage: UNK

REACTIONS (5)
  - Pain [Unknown]
  - Headache [Unknown]
  - Injection site urticaria [Not Recovered/Not Resolved]
  - Injection site pruritus [Recovered/Resolved]
  - Injection site pain [Recovered/Resolved]
